FAERS Safety Report 11550356 (Version 1)
Quarter: 2015Q3

REPORT INFORMATION
  Report Type: Spontaneous
  Country: US (occurrence: US)
  Receive Date: 20150903
  Receipt Date: 20150903
  Transmission Date: 20151125
  Serious: No
  Sender: FDA-Public Use
  Company Number: US-ELI_LILLY_AND_COMPANY-US201212005774

PATIENT
  Sex: Male

DRUGS (1)
  1. HUMALOG [Suspect]
     Active Substance: INSULIN LISPRO
     Indication: DIABETES MELLITUS
     Dosage: 60 U, QD
     Route: 058

REACTIONS (6)
  - Blood glucose increased [Unknown]
  - Somnolence [Unknown]
  - Feeling hot [Unknown]
  - Asthenia [Unknown]
  - Drug ineffective [Unknown]
  - Frustration [Unknown]
